FAERS Safety Report 9854669 (Version 1)
Quarter: 2014Q1

REPORT INFORMATION
  Report Type: Spontaneous
  Country: US (occurrence: US)
  Receive Date: 20140130
  Receipt Date: 20140130
  Transmission Date: 20141002
  Serious: No
  Sender: FDA-Public Use
  Company Number: US-BIOGENIDEC-2014BI008205

PATIENT
  Sex: Female

DRUGS (10)
  1. TECFIDERA [Suspect]
     Indication: MULTIPLE SCLEROSIS
     Route: 048
  2. ACETAMINOPHEN [Concomitant]
  3. ALBUTEROL SULFATE [Concomitant]
  4. CYCLOBENZAPRINE HCL [Concomitant]
  5. DIAZEPAM [Concomitant]
  6. FLUTICASONE PROPIONATE [Concomitant]
  7. HYDROMORPHONE HCL [Concomitant]
  8. LORAZEPAM [Concomitant]
  9. NORTRIPTYLINE HCL [Concomitant]
  10. SUMATRIPTAN [Concomitant]

REACTIONS (2)
  - Fatigue [Unknown]
  - Headache [Unknown]
